FAERS Safety Report 5342588-2 (Version None)
Quarter: 2007Q2

REPORT INFORMATION
  Report Type: 
  Country: None (occurrence: None)
  Receive Date: 20070601
  Receipt Date: 20070521
  Transmission Date: 20071010
  Serious: Yes (Hospitalization)
  Sender: FDA-Public Use
  Company Number: FR-PFIZER INC-2007034306

PATIENT
  Age: 42 Year
  Sex: Male

DRUGS (6)
  1. LYRICA [Suspect]
     Dosage: DAILY DOSE:150MG
     Route: 048
  2. RIFADIN [Suspect]
     Dosage: DAILY DOSE:1.5GRAM-FREQ:DAILY
     Route: 048
  3. TARGOCID [Suspect]
     Dosage: DAILY DOSE:800MG-FREQ:DAILY
     Route: 058
  4. STILNOX [Suspect]
     Route: 048
  5. ACTISKENAN [Suspect]
     Route: 048
  6. SKENAN [Suspect]
     Route: 048

REACTIONS (3)
  - PRURITUS [None]
  - RASH MACULO-PAPULAR [None]
  - TOXIC SKIN ERUPTION [None]
